FAERS Safety Report 24623200 (Version 3)
Quarter: 2025Q3

REPORT INFORMATION
  Report Type: Report from Study
  Country: US (occurrence: US)
  Receive Date: 20241115
  Receipt Date: 20250810
  Transmission Date: 20251020
  Serious: Yes (Death, Hospitalization, Other)
  Sender: ALEXION PHARMACEUTICALS
  Company Number: US-AstraZeneca-CH-00741609A

PATIENT
  Age: 79 Year
  Sex: Male
  Weight: 68.027 kg

DRUGS (1)
  1. DURVALUMAB [Suspect]
     Active Substance: DURVALUMAB
     Route: 065

REACTIONS (7)
  - Death [Fatal]
  - Blood disorder [Unknown]
  - Heart rate increased [Unknown]
  - Hypotension [Unknown]
  - Hospitalisation [Unknown]
  - Dehydration [Unknown]
  - Neoplasm malignant [Unknown]

NARRATIVE: CASE EVENT DATE: 20240401
